FAERS Safety Report 10501490 (Version 1)
Quarter: 2014Q4

REPORT INFORMATION
  Report Type: Spontaneous
  Country: US (occurrence: None)
  Receive Date: 20141006
  Receipt Date: 20141006
  Transmission Date: 20150528
  Serious: No
  Sender: FDA-Public Use
  Company Number: None

PATIENT
  Age: 38 Year
  Weight: 81.65 kg

DRUGS (1)
  1. CIPROFLOXACIN 500MG BAYER [Suspect]
     Active Substance: CIPROFLOXACIN
     Indication: URINARY TRACT INFECTION
     Dosage: 2 PILLS  TWICE DAILY TAKEN BY MOUTH
     Route: 048

REACTIONS (5)
  - Vertigo [None]
  - Depression [None]
  - Nausea [None]
  - Dizziness [None]
  - Anxiety [None]

NARRATIVE: CASE EVENT DATE: 20140720
